FAERS Safety Report 16877424 (Version 4)
Quarter: 2020Q1

REPORT INFORMATION
  Report Type: Spontaneous
  Country: US (occurrence: US)
  Receive Date: 20191002
  Receipt Date: 20200215
  Transmission Date: 20200409
  Serious: Yes (Other)
  Sender: FDA-Public Use
  Company Number: US-TAKEDA-2019TUS054777

PATIENT
  Age: 70 Year
  Sex: Female
  Weight: 55.78 kg

DRUGS (2)
  1. NINLARO [Suspect]
     Active Substance: IXAZOMIB CITRATE
     Indication: PLASMA CELL MYELOMA
     Dosage: 3 MILLIGRAM
     Route: 048
     Dates: start: 20190916
  2. REVLIMID [Concomitant]
     Active Substance: LENALIDOMIDE
     Dosage: 10 MILLIGRAM, QD
     Route: 065

REACTIONS (11)
  - Chest pain [Unknown]
  - Pruritus [Unknown]
  - Nausea [Unknown]
  - Pain in extremity [Unknown]
  - Medication error [Unknown]
  - Decreased appetite [Unknown]
  - Upper limb fracture [Unknown]
  - Chest discomfort [Unknown]
  - Pain [Unknown]
  - Urinary tract infection [Unknown]
  - Back pain [Unknown]

NARRATIVE: CASE EVENT DATE: 20200120
